FAERS Safety Report 6818548-9 (Version None)
Quarter: 2010Q3

REPORT INFORMATION
  Report Type: 
  Country: None (occurrence: None)
  Receive Date: 20100706
  Receipt Date: 20100622
  Transmission Date: 20110219
  Serious: Yes (Other)
  Sender: FDA-Public Use
  Company Number: US-GENENTECH-303411

PATIENT
  Sex: Female
  Weight: 9.5 kg

DRUGS (1)
  1. SOMATROPIN [Suspect]
     Indication: PITUITARY HYPOPLASIA
     Dosage: 0.5 MG, QD
     Dates: start: 20090414

REACTIONS (1)
  - CONVULSION [None]
